FAERS Safety Report 7814955-6 (Version None)
Quarter: 2011Q4

REPORT INFORMATION
  Report Type: 
  Country: None (occurrence: None)
  Receive Date: 20111013
  Receipt Date: 20111013
  Transmission Date: 20120403
  Serious: Yes (Life-Threatening, Hospitalization, Disabling, Other)
  Sender: FDA-Public Use
  Company Number: None

PATIENT
  Age: 30 Year
  Sex: Female
  Weight: 63.5036 kg

DRUGS (3)
  1. LISINOPRIL [Suspect]
     Dosage: 1X DAY
     Dates: start: 20110101
  2. LISINOPRIL [Suspect]
     Dosage: 1X DAY
     Dates: start: 20090101
  3. LISINOPRIL [Suspect]
     Dosage: 1X DAY
     Dates: start: 20100101

REACTIONS (13)
  - CHEST PAIN [None]
  - DIZZINESS [None]
  - RENAL HAEMORRHAGE [None]
  - HYPERTENSION [None]
  - BREAST MASS [None]
  - SWELLING [None]
  - VISION BLURRED [None]
  - OVARIAN CYST [None]
  - NEPHROLITHIASIS [None]
  - AMNESIA [None]
  - UTERINE LEIOMYOMA [None]
  - GLAUCOMA [None]
  - BREAST CYST [None]
